FAERS Safety Report 23295602 (Version 5)
Quarter: 2024Q2

REPORT INFORMATION
  Report Type: Spontaneous
  Country: US (occurrence: US)
  Receive Date: 20231214
  Receipt Date: 20240410
  Transmission Date: 20240715
  Serious: No
  Sender: FDA-Public Use
  Company Number: US-PFIZER INC-202300418416

PATIENT
  Age: 35 Year
  Sex: Female

DRUGS (2)
  1. GENOTROPIN [Suspect]
     Active Substance: SOMATROPIN
     Indication: Growth hormone deficiency
     Dosage: 0.4 MG, DAILY
     Dates: start: 202307
  2. NORTRIPTYLINE HYDROCHLORIDE [Concomitant]
     Active Substance: NORTRIPTYLINE HYDROCHLORIDE
     Indication: Migraine
     Dosage: 100 MG, 1X/DAY

REACTIONS (3)
  - Incorrect dose administered by device [Unknown]
  - Drug dose omission by device [Unknown]
  - Device information output issue [Unknown]
